FAERS Safety Report 12449300 (Version 1)
Quarter: 2016Q2

REPORT INFORMATION
  Report Type: Spontaneous
  Country: CZ (occurrence: CZ)
  Receive Date: 20160608
  Receipt Date: 20160608
  Transmission Date: 20160815
  Serious: Yes (Other)
  Sender: FDA-Public Use
  Company Number: CZ-ALLERGAN-1659331US

PATIENT
  Age: 37 Year
  Sex: Female

DRUGS (2)
  1. LEVOSERT [Suspect]
     Active Substance: LEVONORGESTREL
     Indication: METRORRHAGIA
  2. LEVOSERT [Suspect]
     Active Substance: LEVONORGESTREL
     Indication: CONTRACEPTION
     Dosage: 52 MG, UNK
     Route: 015
     Dates: start: 20151112, end: 20160509

REACTIONS (3)
  - Uterine inflammation [Recovered/Resolved]
  - Metrorrhagia [Recovered/Resolved]
  - Abdominal pain lower [Recovered/Resolved]
